FAERS Safety Report 8821745 (Version 3)
Quarter: 2012Q4

REPORT INFORMATION
  Report Type: 
  Country: US (occurrence: US)
  Receive Date: 20121002
  Receipt Date: 20121213
  Transmission Date: 20130627
  Serious: No
  Sender: FDA-Public Use
  Company Number: US-009507513-1209USA007880

PATIENT
  Age: 20 None
  Sex: Female
  Weight: 97.51 kg

DRUGS (5)
  1. IMPLANON [Suspect]
     Indication: MENSTRUAL CYCLE MANAGEMENT
     Dosage: UNK
     Route: 059
     Dates: start: 201109, end: 20121212
  2. SINGULAIR [Concomitant]
  3. LORATADINE [Concomitant]
  4. FLONASE [Concomitant]
  5. ORTHO EVRA [Concomitant]

REACTIONS (4)
  - Metrorrhagia [Unknown]
  - Drug ineffective for unapproved indication [Unknown]
  - Medical device complication [Unknown]
  - Off label use [Unknown]
